FAERS Safety Report 14707117 (Version 1)
Quarter: 2018Q2

REPORT INFORMATION
  Report Type: Spontaneous
  Country: US (occurrence: US)
  Receive Date: 20180403
  Receipt Date: 20180403
  Transmission Date: 20180711
  Serious: Yes (Disabling)
  Sender: FDA-Public Use
  Company Number: US-STRIDES ARCOLAB LIMITED-2018SP002296

PATIENT

DRUGS (1)
  1. JOINTFLEX [Suspect]
     Active Substance: CAMPHOR (SYNTHETIC)
     Indication: ARTHRITIS
     Dosage: UNK
     Route: 061
     Dates: start: 201802

REACTIONS (2)
  - Drug ineffective [Recovered/Resolved]
  - Product substitution issue [Unknown]
